FAERS Safety Report 24754582 (Version 1)
Quarter: 2024Q4

REPORT INFORMATION
  Report Type: Spontaneous
  Country: US (occurrence: US)
  Receive Date: 20241219
  Receipt Date: 20241219
  Transmission Date: 20250114
  Serious: No
  Sender: MYLAN
  Company Number: US-MYLANLABS-2024M1110382

PATIENT
  Age: 40 Year
  Sex: Female
  Weight: 72.57 kg

DRUGS (3)
  1. ESTRADIOL TRANSDERMAL SYSTEM [Suspect]
     Active Substance: ESTRADIOL
     Indication: Hysterectomy
     Dosage: 0.075 MILLIGRAM, QD (PER DAY, PATCH TWICE WEEKLY)
     Route: 062
     Dates: start: 2018
  2. ESTRADIOL TRANSDERMAL SYSTEM [Suspect]
     Active Substance: ESTRADIOL
     Dosage: 0.075 MILLIGRAM, QD (PER DAY, PATCH TWICE WEEKLY)
     Route: 062
  3. TREMFYA [Concomitant]
     Active Substance: GUSELKUMAB
     Indication: Psoriasis
     Dosage: 100 MILLIGRAM (ONE SHOT EVERY 2 MONTHS)
     Route: 065
     Dates: start: 2022

REACTIONS (5)
  - Impaired healing [Unknown]
  - Skin exfoliation [Unknown]
  - Application site pain [Recovered/Resolved]
  - Pruritus [Recovered/Resolved]
  - Product substitution issue [Unknown]
